FAERS Safety Report 22036334 (Version 1)
Quarter: 2023Q1

REPORT INFORMATION
  Report Type: Spontaneous
  Country: US (occurrence: None)
  Receive Date: 20230225
  Receipt Date: 20230225
  Transmission Date: 20230418
  Serious: No
  Sender: FDA-Public Use
  Company Number: 2023A037705

PATIENT

DRUGS (1)
  1. BUDESONIDE\FORMOTEROL\GLYCOPYRRONIUM [Suspect]
     Active Substance: BUDESONIDE\FORMOTEROL\GLYCOPYRRONIUM
     Dosage: 160MCG, INHALED, UNKNOWN UNKNOWN
     Route: 055

REACTIONS (6)
  - Chronic obstructive pulmonary disease [Unknown]
  - Incorrect dose administered by device [Unknown]
  - Device delivery system issue [Unknown]
  - Product use issue [Unknown]
  - Intentional device use issue [Unknown]
  - Device issue [Unknown]
